FAERS Safety Report 20478311 (Version 2)
Quarter: 2022Q3

REPORT INFORMATION
  Report Type: Spontaneous
  Country: CA (occurrence: CA)
  Receive Date: 20220216
  Receipt Date: 20220824
  Transmission Date: 20221027
  Serious: Yes (Other)
  Sender: FDA-Public Use
  Company Number: CA-SAMSUNG BIOEPIS-SB-2022-03489

PATIENT
  Age: 61 Year
  Sex: Male

DRUGS (1)
  1. INFLIXIMAB [Suspect]
     Active Substance: INFLIXIMAB
     Indication: Crohn^s disease
     Dosage: UNKNOWN
     Route: 042

REACTIONS (20)
  - Gastrointestinal infection [Unknown]
  - Arthritis [Unknown]
  - Chills [Unknown]
  - Hypertension [Unknown]
  - Influenza like illness [Unknown]
  - Insomnia [Unknown]
  - Malaise [Unknown]
  - Nausea [Unknown]
  - Pyrexia [Unknown]
  - Sensitivity to weather change [Unknown]
  - Vomiting [Unknown]
  - Abdominal pain [Unknown]
  - Abdominal pain upper [Unknown]
  - Condition aggravated [Unknown]
  - Feeling hot [Unknown]
  - Frequent bowel movements [Unknown]
  - Hyperhidrosis [Unknown]
  - Migraine [Unknown]
  - Intentional product use issue [Unknown]
  - Off label use [Unknown]
